FAERS Safety Report 5253977-9 (Version None)
Quarter: 2007Q1

REPORT INFORMATION
  Report Type: 
  Country: None (occurrence: None)
  Receive Date: 20070228
  Receipt Date: 20070228
  Transmission Date: 20070707
  Serious: Yes (Other)
  Sender: FDA-Public Use
  Company Number: None

PATIENT
  Age: 69 Year
  Sex: Male
  Weight: 110.6777 kg

DRUGS (6)
  1. INH 900 MG [Suspect]
     Indication: TUBERCULOSIS
     Dosage: 900MG TWICE WEEKLY ORALLY
     Route: 048
     Dates: start: 20060623
  2. RIFAMPIN [Suspect]
     Indication: TUBERCULOSIS
     Dosage: 600MG TWICE WEEKLY ORALLY
     Route: 048
     Dates: start: 20060623
  3. METFORMIN [Concomitant]
  4. PHENERGAN HCL [Concomitant]
  5. ATARAX [Concomitant]
  6. DARVON [Concomitant]

REACTIONS (3)
  - PRURITUS [None]
  - RASH [None]
  - SKIN ULCER [None]
